FAERS Safety Report 9363661 (Version 2)
Quarter: 2013Q3

REPORT INFORMATION
  Report Type: Spontaneous
  Country: US (occurrence: US)
  Receive Date: 20130624
  Receipt Date: 20130725
  Transmission Date: 20140515
  Serious: No
  Sender: FDA-Public Use
  Company Number: US-PFIZER INC-2013184970

PATIENT
  Age: 79 Year
  Sex: Female
  Weight: 72.6 kg

DRUGS (4)
  1. PREMARIN [Suspect]
     Indication: VAGINAL DISORDER
     Dosage: UNK
     Route: 048
  2. PREMARIN [Suspect]
     Indication: VAGINAL DISORDER
     Dosage: 1 G, WEEKLY
     Route: 067
  3. COUMADIN [Concomitant]
     Dosage: UNK
  4. SPIRONOLACTONE W/HYDROCHLOROTHIAZIDE [Concomitant]
     Indication: HYPERTENSION
     Dosage: 25/25 MG, 1X/DAY

REACTIONS (2)
  - Fluid retention [Unknown]
  - International normalised ratio increased [Unknown]
